FAERS Safety Report 8005542-8 (Version None)
Quarter: 2011Q4

REPORT INFORMATION
  Report Type: 
  Country: None (occurrence: None)
  Receive Date: 20111223
  Receipt Date: 20111209
  Transmission Date: 20120403
  Serious: Yes (Other)
  Sender: FDA-Public Use
  Company Number: JP-ROCHE-777570

PATIENT
  Sex: Female

DRUGS (15)
  1. SELBEX [Concomitant]
  2. PREDNISOLONE [Concomitant]
     Indication: RHEUMATOID ARTHRITIS
     Dates: end: 20110220
  3. ACTEMRA [Suspect]
     Indication: RHEUMATOID ARTHRITIS
     Route: 003
     Dates: start: 20101119, end: 20101214
  4. FOLIC ACID [Concomitant]
     Indication: PROPHYLAXIS
     Dates: end: 20111013
  5. RABEPRAZOLE SODIUM [Concomitant]
  6. ACTEMRA [Suspect]
     Dates: start: 20100816, end: 20100914
  7. ACTEMRA [Suspect]
     Dates: start: 20101119, end: 20101214
  8. PREDNISOLONE [Concomitant]
     Dates: start: 20110404
  9. ALENDRONATE SODIUM [Concomitant]
     Dates: end: 20110113
  10. ACTEMRA [Suspect]
  11. PREDNISOLONE [Concomitant]
     Dates: start: 20110221, end: 20110403
  12. METHOTREXATE SODIUM [Suspect]
     Indication: RHEUMATOID ARTHRITIS
     Dates: end: 20110113
  13. ONEALFA [Concomitant]
  14. PRORENAL [Concomitant]
  15. CELECOXIB [Concomitant]

REACTIONS (2)
  - OSTEOMYELITIS [None]
  - GINGIVITIS [None]
